FAERS Safety Report 20081473 (Version 1)
Quarter: 2021Q4

REPORT INFORMATION
  Report Type: Spontaneous
  Country: GB (occurrence: GB)
  Receive Date: 20211117
  Receipt Date: 20211117
  Transmission Date: 20220303
  Serious: Yes (Other)
  Sender: FDA-Public Use
  Company Number: None

PATIENT
  Age: 47 Year
  Sex: Female
  Weight: 55.8 kg

DRUGS (7)
  1. LANSOPRAZOLE [Suspect]
     Active Substance: LANSOPRAZOLE
     Dosage: 30 MILLIGRAM DAILY; EACH MORNING
     Route: 065
     Dates: start: 20211101
  2. DOXYCYCLINE [Concomitant]
     Active Substance: DOXYCYCLINE
     Dosage: TWO TO BE TAKEN ON THE FIRST DAY THEN ONE TO BE TAKEN EACH DAY, 100MG
     Dates: start: 20210927
  3. FAMOTIDINE [Concomitant]
     Active Substance: FAMOTIDINE
     Dosage: 20 MILLIGRAM DAILY; AT NIGHT
     Dates: start: 20211104
  4. MEBEVERINE [Concomitant]
     Active Substance: MEBEVERINE
     Dosage: 405 MILLIGRAM DAILY; TWENTY MINUTES BEFORE FOOD
     Dates: start: 20211104
  5. PREDNISOLONE [Concomitant]
     Active Substance: PREDNISOLONE
     Dosage: 40 MILLIGRAM DAILY; 5MG
     Dates: start: 20210927, end: 20211026
  6. PREDNISOLONE [Concomitant]
     Active Substance: PREDNISOLONE
     Dosage: 40 MILLIGRAM DAILY; EIGHT TO BE TAKEN EACH DAY TO MAKE 10 DAY COURSE. THEN REDUCE BY 1 TABLET A DAY
     Dates: start: 20211001
  7. SEBCO [Concomitant]
     Dosage: APPLY TO TO THREE TIMES A WEEK TO SCALP. LEAVE ON FOR ONE HOUR THEN RINSE OFF, 100GM
     Dates: start: 20210809, end: 20210921

REACTIONS (1)
  - Swelling face [Unknown]

NARRATIVE: CASE EVENT DATE: 20211101
